FAERS Safety Report 17252551 (Version 7)
Quarter: 2020Q1

REPORT INFORMATION
  Report Type: Report from Study
  Country: HU (occurrence: HU)
  Receive Date: 20200109
  Receipt Date: 20200317
  Transmission Date: 20200409
  Serious: Yes (Hospitalization, Other)
  Sender: FDA-Public Use
  Company Number: HU-PFIZER INC-2020008948

PATIENT
  Age: 49 Year
  Sex: Male

DRUGS (14)
  1. VISIPAQUE [Suspect]
     Active Substance: IODIXANOL
     Indication: ACUTE MYOCARDIAL INFARCTION
     Dosage: 165 ML
     Route: 065
     Dates: start: 20191124
  2. LIDOCAINE. [Concomitant]
     Active Substance: LIDOCAINE
     Indication: LOCAL ANAESTHESIA
     Dosage: 1 MILLILITER, QD
     Route: 042
     Dates: start: 20191124, end: 20191124
  3. BISOPROLOL [Concomitant]
     Active Substance: BISOPROLOL
     Indication: ACUTE MYOCARDIAL INFARCTION
     Dosage: 1.25 MILLIGRAM, QD
     Route: 048
     Dates: start: 20191124
  4. PANTOPRAZOLE [Suspect]
     Active Substance: PANTOPRAZOLE
     Indication: PROPHYLAXIS AGAINST GASTROINTESTINAL ULCER
     Dosage: 40 MILLIGRAM, QD
     Route: 048
     Dates: start: 20191124
  5. TRITACE [Suspect]
     Active Substance: RAMIPRIL
     Indication: ACUTE MYOCARDIAL INFARCTION
     Dosage: 2.5 MILLIGRAM, QD
     Route: 048
     Dates: start: 20191124, end: 20191127
  6. EFIENT [Suspect]
     Active Substance: PRASUGREL HYDROCHLORIDE
     Indication: ACUTE MYOCARDIAL INFARCTION
     Dosage: 60 MILLIGRAM ONCE
     Route: 048
     Dates: start: 20191124, end: 20191124
  7. IOMERON [Suspect]
     Active Substance: IOMEPROL
     Indication: COMPUTERISED TOMOGRAM
     Dosage: 80 ML
     Route: 065
     Dates: start: 20191126
  8. ACETYLSALICYLIC ACID [Concomitant]
     Active Substance: ASPIRIN
     Indication: ACUTE MYOCARDIAL INFARCTION
     Dosage: 300 MG, 1X
     Route: 048
     Dates: start: 20191124, end: 20191124
  9. ATORVASTATIN [Concomitant]
     Active Substance: ATORVASTATIN
     Indication: ACUTE MYOCARDIAL INFARCTION
     Dosage: 80 MILLIGRAM, QD
     Route: 048
     Dates: start: 20191124
  10. GLUCOSE/GLYCERYL TRINITRATE [Concomitant]
     Indication: ACUTE MYOCARDIAL INFARCTION
     Dosage: 8 MILLIGRAM, QD
     Route: 060
     Dates: start: 20191124, end: 20191124
  11. HEPARINE [HEPARIN] [Concomitant]
     Active Substance: HEPARIN SODIUM
     Indication: PERCUTANEOUS CORONARY INTERVENTION
     Dosage: 1 MILLILITER, QD
     Route: 042
     Dates: start: 20191124, end: 20191124
  12. EFIENT [Suspect]
     Active Substance: PRASUGREL HYDROCHLORIDE
     Dosage: 10 MILLIGRAM, QD
     Route: 048
     Dates: start: 20191124, end: 20191127
  13. CLOPIDOGREL [Concomitant]
     Active Substance: CLOPIDOGREL BISULFATE
     Indication: ACUTE MYOCARDIAL INFARCTION
     Dosage: 600 MILLIGRAM, QD
     Route: 048
     Dates: start: 20191124, end: 20191124
  14. ACETYLSALICYLIC ACID [Concomitant]
     Active Substance: ASPIRIN
     Dosage: 100 MILLIGRAM, QD
     Route: 048
     Dates: start: 20191124

REACTIONS (1)
  - Toxic skin eruption [Recovered/Resolved]

NARRATIVE: CASE EVENT DATE: 20191127
